FAERS Safety Report 16814159 (Version 1)
Quarter: 2019Q3

REPORT INFORMATION
  Report Type: Spontaneous
  Country: US (occurrence: US)
  Receive Date: 20190917
  Receipt Date: 20190917
  Transmission Date: 20191005
  Serious: No
  Sender: FDA-Public Use
  Company Number: US-ALLERGAN-1858023US

PATIENT
  Age: 39 Year
  Sex: Female
  Weight: 115.65 kg

DRUGS (4)
  1. LINZESS [Suspect]
     Active Substance: LINACLOTIDE
     Indication: CONSTIPATION
  2. UNSPECIFIED THYROID MEDICAITON [Concomitant]
     Indication: HYPOTHYROIDISM
  3. LINZESS [Suspect]
     Active Substance: LINACLOTIDE
     Indication: HAEMORRHOIDS
     Dosage: 145 ?G, QD
     Route: 048
     Dates: start: 20181128
  4. LINZESS [Suspect]
     Active Substance: LINACLOTIDE
     Indication: CONSTIPATION

REACTIONS (2)
  - Off label use [Unknown]
  - Therapeutic response unexpected [Not Recovered/Not Resolved]

NARRATIVE: CASE EVENT DATE: 20181128
